FAERS Safety Report 6808221-5 (Version None)
Quarter: 2010Q2

REPORT INFORMATION
  Report Type: 
  Country: None (occurrence: None)
  Receive Date: 20100629
  Receipt Date: 20090408
  Transmission Date: 20101027
  Serious: No
  Sender: FDA-Public Use
  Company Number: US-PFIZER INC-2009198443

PATIENT
  Weight: 95.3 kg

DRUGS (1)
  1. VIAGRA [Suspect]
     Dosage: 100 MG, UNK
     Dates: start: 20090408

REACTIONS (3)
  - GENITAL PAIN [None]
  - GENITAL SWELLING [None]
  - INTENTIONAL DRUG MISUSE [None]
